FAERS Safety Report 8080195-1 (Version None)
Quarter: 2012Q1

REPORT INFORMATION
  Report Type: 
  Country: None (occurrence: None)
  Receive Date: 20120130
  Receipt Date: 20120119
  Transmission Date: 20120608
  Serious: Yes (Other)
  Sender: FDA-Public Use
  Company Number: US-GENZYME-RENA-1001431

PATIENT

DRUGS (1)
  1. RENVELA [Suspect]
     Indication: HYPERPHOSPHATAEMIA
     Dosage: 3 TABLETS,0.8 G ANYTIME FOOD OR SODA IS CONSUMED
     Route: 048

REACTIONS (3)
  - INFLAMMATION [None]
  - GRANULOMA [None]
  - SKIN CANCER [None]
